FAERS Safety Report 5518929-X (Version None)
Quarter: 2007Q4

REPORT INFORMATION
  Report Type: 
  Country: None (occurrence: None)
  Receive Date: 20071114
  Receipt Date: 20071114
  Transmission Date: 20080405
  Serious: Yes (Other)
  Sender: FDA-Public Use
  Company Number: None

PATIENT
  Age: 81 Year
  Sex: Male
  Weight: 71.6683 kg

DRUGS (1)
  1. AMBIEN CR [Suspect]
     Indication: MIDDLE INSOMNIA

REACTIONS (4)
  - ABNORMAL SLEEP-RELATED EVENT [None]
  - AMNESIA [None]
  - HALLUCINATION [None]
  - SOMNAMBULISM [None]
